FAERS Safety Report 21131935 (Version 1)
Quarter: 2022Q3

REPORT INFORMATION
  Report Type: Spontaneous
  Country: US (occurrence: US)
  Receive Date: 20220726
  Receipt Date: 20220726
  Transmission Date: 20221027
  Serious: Yes (Hospitalization, Other)
  Sender: FDA-Public Use
  Company Number: US-BAXTER-2022BAX015457

PATIENT
  Age: 50 Year
  Sex: Female

DRUGS (3)
  1. SEVOFLURANE [Suspect]
     Active Substance: SEVOFLURANE
     Indication: Anaesthesia
     Dosage: 2.5 HOURS
  2. ROCURONIUM [Suspect]
     Active Substance: ROCURONIUM BROMIDE
     Indication: Cardioversion
     Dosage: 100MG (1.3 MG/KG)
     Route: 065
  3. ROCURONIUM [Suspect]
     Active Substance: ROCURONIUM BROMIDE
     Indication: Endotracheal intubation

REACTIONS (2)
  - Neuromuscular blockade [Unknown]
  - Hepatic failure [Unknown]
